FAERS Safety Report 19938400 (Version 1)
Quarter: 2021Q4

REPORT INFORMATION
  Report Type: Report from Study
  Country: US (occurrence: US)
  Receive Date: 20211011
  Receipt Date: 20211011
  Transmission Date: 20220303
  Serious: No
  Sender: FDA-Public Use
  Company Number: US-NOVARTISTESTPH-NVSC2021US231320

PATIENT
  Age: 68 Year
  Sex: Male

DRUGS (2)
  1. TOBI [Suspect]
     Active Substance: TOBRAMYCIN
     Indication: Bronchiectasis
     Dosage: UNK
     Route: 065
  2. TOBI [Suspect]
     Active Substance: TOBRAMYCIN
     Indication: Pneumonia pseudomonal
     Dosage: UNK
     Route: 065

REACTIONS (2)
  - Haemoptysis [Unknown]
  - Off label use [Unknown]
